FAERS Safety Report 4705918-8 (Version None)
Quarter: 2005Q2

REPORT INFORMATION
  Report Type: 
  Country: None (occurrence: None)
  Receive Date: 20050630
  Receipt Date: 20050621
  Transmission Date: 20051028
  Serious: No
  Sender: FDA-Public Use
  Company Number: 2005-129498-NL

PATIENT
  Age: 4 Month
  Sex: Male

DRUGS (2)
  1. DEXAMETHASONE [Suspect]
     Indication: LARYNGEAL STENOSIS
     Dosage: 1 MG/KG
  2. ANTIREFLUX MEDICATION [Concomitant]

REACTIONS (8)
  - CARDIAC MURMUR [None]
  - CONDITION AGGRAVATED [None]
  - LARYNGEAL OEDEMA [None]
  - LARYNGEAL STENOSIS [None]
  - OBSTRUCTIVE AIRWAYS DISORDER [None]
  - RESPIRATORY DISTRESS [None]
  - TACHYCARDIA [None]
  - VENTRICULAR HYPERTROPHY [None]
